FAERS Safety Report 7514354-0 (Version None)
Quarter: 2011Q2

REPORT INFORMATION
  Report Type: 
  Country: None (occurrence: None)
  Receive Date: 20110601
  Receipt Date: 20110523
  Transmission Date: 20111010
  Serious: No
  Sender: FDA-Public Use
  Company Number: US-BIOGENIDEC-2011BI019328

PATIENT
  Age: 42 Year
  Sex: Female

DRUGS (2)
  1. TREXIMET [Concomitant]
     Indication: PREMEDICATION
  2. TYSABRI [Suspect]
     Indication: MULTIPLE SCLEROSIS
     Route: 042
     Dates: start: 20110315

REACTIONS (2)
  - FATIGUE [None]
  - MIGRAINE [None]
